FAERS Safety Report 7682868-9 (Version None)
Quarter: 2011Q3

REPORT INFORMATION
  Report Type: 
  Country: None (occurrence: None)
  Receive Date: 20110812
  Receipt Date: 20110812
  Transmission Date: 20111222
  Serious: Yes (Hospitalization)
  Sender: FDA-Public Use
  Company Number: None

PATIENT
  Age: 86 Year
  Sex: Male
  Weight: 95.7 kg

DRUGS (1)
  1. AMPICILLIN AND SULBACTAM [Suspect]
     Indication: WHITE BLOOD CELL COUNT INCREASED
     Dosage: 1.5 GM TID IV
     Route: 042
     Dates: start: 20110608, end: 20110609

REACTIONS (1)
  - ANAPHYLACTIC REACTION [None]
